FAERS Safety Report 19789088 (Version 1)
Quarter: 2021Q3

REPORT INFORMATION
  Report Type: Spontaneous
  Country: DE (occurrence: DE)
  Receive Date: 20210904
  Receipt Date: 20210904
  Transmission Date: 20211014
  Serious: Yes (Hospitalization)
  Sender: FDA-Public Use
  Company Number: DE-ACCORD-237329

PATIENT
  Age: 74 Year
  Sex: Female

DRUGS (13)
  1. STALEVO [Concomitant]
     Active Substance: CARBIDOPA\ENTACAPONE\LEVODOPA
     Dosage: 200/25/100 MG, 1?1?1?1
     Route: 048
  2. IMATINIB ACCORD [Suspect]
     Active Substance: IMATINIB MESYLATE
     Indication: PRODUCT USED FOR UNKNOWN INDICATION
     Dosage: 400 MG, 400 MG, 0?1?0?0
     Route: 048
  3. PROPAPHENIN [Concomitant]
     Dosage: 150 MG, 1?1?1?0
     Route: 048
  4. METOPROLOL. [Concomitant]
     Active Substance: METOPROLOL
     Dosage: 47.5 MG, 1?0?0?0
     Route: 048
  5. MADOPAR [Concomitant]
     Active Substance: BENSERAZIDE HYDROCHLORIDE\LEVODOPA
     Dosage: 25 100 MG, 1?0?1?0, 100MG / 25MG
     Route: 048
  6. AMANTADINE. [Concomitant]
     Active Substance: AMANTADINE HYDROCHLORIDE
     Dosage: 100 MG, 1?0?0?0, TABLET
     Route: 048
  7. PIROXICAM. [Concomitant]
     Active Substance: PIROXICAM
     Dosage: 20 MG, 1?0?0?0
     Route: 048
  8. BENSERAZIDE/LEVODOPA [Concomitant]
     Active Substance: BENSERAZIDE\LEVODOPA
     Dosage: 12.5/50 MG, 1.5?1.5?1.5?1.5
     Route: 048
  9. PANTOPRAZOLE [Concomitant]
     Active Substance: PANTOPRAZOLE
     Dosage: 40 MG, 1?0?0?0
     Route: 048
  10. PRAMIPEXOLE/PRAMIPEXOLE DIHYDROCHLORIDE [Concomitant]
     Active Substance: PRAMIPEXOLE DIHYDROCHLORIDE
     Dosage: 1.57 MG, 1?0?0?0
     Route: 048
  11. APIXABAN [Suspect]
     Active Substance: APIXABAN
     Indication: PRODUCT USED FOR UNKNOWN INDICATION
     Dosage: 5 MG, 1?0?1?0, TABLETS
     Route: 048
  12. MADOPAR DEPOT [Concomitant]
     Active Substance: BENSERAZIDE HYDROCHLORIDE\LEVODOPA
     Dosage: 25 100 MG, 0?0?0?1
     Route: 048
  13. LEVOTHYROXINE. [Concomitant]
     Active Substance: LEVOTHYROXINE
     Dosage: 75 UG, 1?0?0?0
     Route: 048

REACTIONS (4)
  - Fatigue [Unknown]
  - Haematochezia [Unknown]
  - Decreased appetite [Unknown]
  - Anal pruritus [Unknown]
